FAERS Safety Report 13773627 (Version 3)
Quarter: 2017Q3

REPORT INFORMATION
  Report Type: Spontaneous
  Country: US (occurrence: US)
  Receive Date: 20170720
  Receipt Date: 20170920
  Transmission Date: 20171127
  Serious: No
  Sender: FDA-Public Use
  Company Number: US-RECKITT BENCKISER HEALTHCARE INT LIMITED-RB-84950-2017

PATIENT
  Age: 68 Year
  Sex: Female

DRUGS (1)
  1. MUCINEX [Suspect]
     Active Substance: GUAIFENESIN
     Indication: PRODUCT USED FOR UNKNOWN INDICATION
     Dosage: UNK, 2 TABLETS FROM 31-JAN-2017 TO 02-FEB-2017
     Route: 065
     Dates: start: 20170131, end: 20170202

REACTIONS (1)
  - Malaise [Unknown]
